FAERS Safety Report 7836225 (Version 14)
Quarter: 2014Q2

REPORT INFORMATION
  Report Type: Report from Study
  Country: CA (occurrence: CA)
  Receive Date: 20110302
  Receipt Date: 20140603
  Transmission Date: 20141212
  Serious: Yes (Death, Hospitalization, Other)
  Sender: FDA-Public Use
  Company Number: PHHY2010CA31066

PATIENT
  Age: 62 Year
  Sex: Male

DRUGS (2)
  1. SANDOSTATIN LAR [Suspect]
     Indication: CARCINOID TUMOUR
     Dosage: 30 MG, EVERY 4 WEEKS
     Route: 030
     Dates: start: 20060216
  2. SANDOSTATIN [Suspect]
     Indication: CARCINOID TUMOUR
     Dosage: UNK UKN, TID
     Route: 058

REACTIONS (14)
  - Death [Fatal]
  - Second primary malignancy [Unknown]
  - Gout [Not Recovered/Not Resolved]
  - General physical health deterioration [Unknown]
  - Spinal cord compression [Unknown]
  - Pain [Recovering/Resolving]
  - Discomfort [Unknown]
  - Hypoaesthesia [Unknown]
  - Weight decreased [Unknown]
  - Peripheral swelling [Recovered/Resolved]
  - Gastrointestinal motility disorder [Not Recovered/Not Resolved]
  - Back pain [Unknown]
  - Gastrointestinal disorder [Unknown]
  - Decreased appetite [Unknown]
